FAERS Safety Report 5390033-3 (Version None)
Quarter: 2007Q3

REPORT INFORMATION
  Report Type: 
  Country: None (occurrence: None)
  Receive Date: 20070718
  Receipt Date: 20070711
  Transmission Date: 20080115
  Serious: Yes (Other)
  Sender: FDA-Public Use
  Company Number: ES-AVENTIS-200713453EU

PATIENT
  Age: 69 Year
  Sex: Female

DRUGS (1)
  1. SEGURIL                            /00032601/ [Suspect]
     Route: 048
     Dates: start: 20070302, end: 20070525

REACTIONS (5)
  - BLOOD UREA INCREASED [None]
  - HYPOKALAEMIA [None]
  - HYPONATRAEMIA [None]
  - PHOTOSENSITIVITY REACTION [None]
  - WEIGHT DECREASED [None]
